FAERS Safety Report 11501644 (Version 2)
Quarter: 2015Q4

REPORT INFORMATION
  Report Type: Spontaneous
  Country: BR (occurrence: BR)
  Receive Date: 20150914
  Receipt Date: 20151012
  Transmission Date: 20160304
  Serious: Yes (Other)
  Sender: FDA-Public Use
  Company Number: BR-PFIZER INC-2015301644

PATIENT
  Age: 62 Year
  Sex: Male
  Weight: 94 kg

DRUGS (4)
  1. ONGLYZA [Concomitant]
     Active Substance: SAXAGLIPTIN HYDROCHLORIDE
     Indication: DIABETES MELLITUS
     Dosage: UNK, 1X/DAY
     Dates: start: 2013
  2. GLIFAGE XR [Concomitant]
     Active Substance: METFORMIN HYDROCHLORIDE
     Dosage: UNK
     Dates: start: 2013
  3. DOSTINEX [Suspect]
     Active Substance: CABERGOLINE
     Indication: HYPOTHALAMO-PITUITARY DISORDER
     Dosage: 0.5 MG, 1X/WEEK
     Route: 048
     Dates: start: 1999, end: 201507
  4. GLIMEPIRIDE. [Concomitant]
     Active Substance: GLIMEPIRIDE
     Dosage: UNK
     Dates: start: 201412

REACTIONS (1)
  - Dementia Alzheimer^s type [Not Recovered/Not Resolved]

NARRATIVE: CASE EVENT DATE: 201503
